FAERS Safety Report 5128035-4 (Version None)
Quarter: 2006Q4

REPORT INFORMATION
  Report Type: 
  Country: None (occurrence: None)
  Receive Date: 20061013
  Receipt Date: 20061013
  Transmission Date: 20070319
  Serious: Yes (Hospitalization)
  Sender: FDA-Public Use
  Company Number: None

PATIENT
  Age: 57 Year
  Sex: Male
  Weight: 74.3899 kg

DRUGS (9)
  1. LINEZOLID [Suspect]
     Indication: SEPTIC ARTHRITIS STAPHYLOCOCCAL
     Dosage: 600 MG BID PO
     Route: 048
     Dates: start: 20060919, end: 20061006
  2. GLYBURIDE [Concomitant]
  3. ISOSORBIDE [Concomitant]
  4. LISINOPRIL [Concomitant]
  5. METOPROLOL TARTRATE [Concomitant]
  6. NIACIN [Concomitant]
  7. OXYCODONE HCL [Concomitant]
  8. PANTOPRAZOLE SODIUM [Concomitant]
  9. TEMAZEPAM [Concomitant]

REACTIONS (1)
  - CLOSTRIDIAL INFECTION [None]
